FAERS Safety Report 11980390 (Version 3)
Quarter: 2016Q1

REPORT INFORMATION
  Report Type: Spontaneous
  Country: US (occurrence: US)
  Receive Date: 20160129
  Receipt Date: 20160315
  Transmission Date: 20160526
  Serious: Yes (Other)
  Sender: FDA-Public Use
  Company Number: US-PFIZER INC-2016049641

PATIENT
  Age: 63 Year
  Sex: Male
  Weight: 92.99 kg

DRUGS (2)
  1. KLONOPIN [Concomitant]
     Active Substance: CLONAZEPAM
     Indication: NEUROPATHY PERIPHERAL
     Dosage: UNK, 3 TIMES A DAY, AS NEEDED
  2. PRISTIQ EXTENDED RELEASE [Suspect]
     Active Substance: DESVENLAFAXINE SUCCINATE
     Indication: BIPOLAR DISORDER
     Dosage: 50MG, ONE TABLET, PER DAY

REACTIONS (7)
  - Pituitary tumour [Unknown]
  - Feeling abnormal [Unknown]
  - Malignant melanoma [Unknown]
  - Mania [Unknown]
  - Drug dose omission [Unknown]
  - Depression [Unknown]
  - Activities of daily living impaired [Unknown]
